FAERS Safety Report 26148000 (Version 1)
Quarter: 2025Q4

REPORT INFORMATION
  Report Type: Spontaneous
  Country: US (occurrence: US)
  Receive Date: 20251212
  Receipt Date: 20251212
  Transmission Date: 20260118
  Serious: No
  Sender: ROCHE
  Company Number: US-ROCHE-10000456516

PATIENT
  Sex: Female

DRUGS (2)
  1. ITOVEBI [Suspect]
     Active Substance: INAVOLISIB
     Indication: Product used for unknown indication
  2. ITOVEBI [Suspect]
     Active Substance: INAVOLISIB

REACTIONS (2)
  - Blood glucose increased [Unknown]
  - Liver disorder [Unknown]
